FAERS Safety Report 4399978-4 (Version None)
Quarter: 2004Q3

REPORT INFORMATION
  Report Type: 
  Country: None (occurrence: None)
  Receive Date: 20040714
  Receipt Date: 20040705
  Transmission Date: 20050211
  Serious: Yes (Death, Other)
  Sender: FDA-Public Use
  Company Number: 2004-07-0073

PATIENT
  Age: 58 Year
  Sex: Male

DRUGS (6)
  1. INTRON A [Suspect]
     Indication: RENAL CELL CARCINOMA STAGE UNSPECIFIED
     Dosage: 6 MIU INTRAMUSCULAR
     Route: 030
     Dates: start: 20040626, end: 20040627
  2. RADIATION THERAPY NO DOSE FORM [Suspect]
     Indication: METASTASES TO BONE
     Dosage: X-RAY THERAPY
  3. FLURBIPROFEN [Concomitant]
  4. DECADRON [Concomitant]
  5. MORPHINE [Concomitant]
  6. PARIET (RABEPRAZOLE SODIUM) [Concomitant]

REACTIONS (4)
  - ENTEROCOLITIS HAEMORRHAGIC [None]
  - INTESTINAL PERFORATION [None]
  - METASTASES TO BONE [None]
  - PERITONITIS [None]
